FAERS Safety Report 8870241 (Version 1)
Quarter: 2012Q4

REPORT INFORMATION
  Report Type: 
  Country: US (occurrence: US)
  Receive Date: 20121026
  Receipt Date: 20121026
  Transmission Date: 20130627
  Serious: No
  Sender: FDA-Public Use
  Company Number: US-ASTRAZENECA-2012SE80008

PATIENT
  Age: 64 Year
  Sex: Female
  Weight: 65.8 kg

DRUGS (3)
  1. PRILOSEC [Suspect]
     Indication: OROPHARYNGEAL PAIN
     Route: 048
     Dates: start: 20120713, end: 20120718
  2. CLARITIN [Concomitant]
  3. NYSTATIN [Concomitant]

REACTIONS (3)
  - Fluid retention [Recovered/Resolved]
  - Dysgeusia [Not Recovered/Not Resolved]
  - Off label use [Unknown]
